FAERS Safety Report 13681826 (Version 8)
Quarter: 2021Q1

REPORT INFORMATION
  Report Type: Report from Study
  Country: CN (occurrence: CN)
  Receive Date: 20170623
  Receipt Date: 20210331
  Transmission Date: 20210419
  Serious: Yes (Hospitalization)
  Sender: FDA-Public Use
  Company Number: CN-ROCHE-1954213

PATIENT
  Age: 68 Year
  Sex: Male
  Weight: 82 kg

DRUGS (36)
  1. POLYENE PHOSPHATIDYLCHOLINE [Concomitant]
     Active Substance: PHOSPHOLIPID
     Dates: start: 20200509, end: 20200922
  2. TRIMETAZIDINE DIHYDROCHLORIDE [Concomitant]
     Active Substance: TRIMETAZIDINE DIHYDROCHLORIDE
     Dosage: HEART PROTECTION
     Dates: start: 20170718, end: 20170725
  3. GLICLAZIDE [Concomitant]
     Active Substance: GLICLAZIDE
     Indication: HYPERGLYCAEMIA
     Dates: start: 20191009
  4. GLUCOSE [Concomitant]
     Active Substance: DEXTROSE
     Dates: start: 20170621, end: 20170621
  5. COMPOUND METHOXYPHENAMINE [Concomitant]
     Indication: PRODUCTIVE COUGH
  6. DIAMICRON MR [Concomitant]
     Active Substance: GLICLAZIDE
     Indication: HYPERGLYCAEMIA
     Dates: start: 20171226
  7. ACARBOSE. [Concomitant]
     Active Substance: ACARBOSE
     Indication: HYPERGLYCAEMIA
     Dates: start: 20171226
  8. METFORMIN HYDROCHLORIDE. [Concomitant]
     Active Substance: METFORMIN HYDROCHLORIDE
     Dates: start: 20190902, end: 20200614
  9. CEFPROZIL. [Concomitant]
     Active Substance: CEFPROZIL
     Indication: COUGH
     Dates: start: 20190106, end: 20190109
  10. OFLOXACIN. [Concomitant]
     Active Substance: OFLOXACIN
     Indication: CONJUNCTIVITIS
     Dates: start: 20200615, end: 20200703
  11. ATEZOLIZUMAB. [Suspect]
     Active Substance: ATEZOLIZUMAB
     Indication: NON-SMALL CELL LUNG CANCER
     Dosage: 12/OCT/2017, MOST RECENT DOSE OF ATEZOLIZUMAB PRIOR TO SAE ONSET
     Route: 042
     Dates: start: 20160805
  12. POTASSIUM CHLORIDE. [Concomitant]
     Active Substance: POTASSIUM CHLORIDE
     Dosage: NUTRITIONAL MYOCARDIUM
     Dates: start: 20170621, end: 20170621
  13. FRUCTOSE DIPHOSPHATE SODIUM [Concomitant]
     Dosage: HEART PROTECTION
     Dates: start: 20170718, end: 20170725
  14. CELECOXIB. [Concomitant]
     Active Substance: CELECOXIB
     Indication: ARTHRALGIA
     Route: 048
     Dates: start: 20170208, end: 20170213
  15. GANCICLOVIR. [Concomitant]
     Active Substance: GANCICLOVIR
     Route: 047
     Dates: start: 20200615, end: 20200703
  16. FUROSEMIDE. [Concomitant]
     Active Substance: FUROSEMIDE
     Indication: POLYURIA
     Dates: start: 20170718, end: 20170722
  17. COMPOUND METHOXYPHENAMINE [Concomitant]
     Indication: COUGH
     Dates: start: 20170120, end: 20170126
  18. METFORMIN HYDROCHLORIDE. [Concomitant]
     Active Substance: METFORMIN HYDROCHLORIDE
     Indication: HYPERGLYCAEMIA
     Dates: start: 20180125
  19. ADEMETIONINE 1,4?BUTANEDISULFONATE [Concomitant]
     Active Substance: ADEMETIONINE BUTANEDISULFONATE
     Dates: start: 20200509, end: 20200614
  20. CREATINE PHOSPHATE SODIUM [Concomitant]
     Active Substance: CREATINE
     Dosage: HEART PROTECTION
     Dates: start: 20170622, end: 20170622
  21. POLYENE PHOSPHATIDYLCHOLINE [Concomitant]
     Active Substance: PHOSPHOLIPID
     Dosage: LIVER PROTECTION
     Dates: start: 20170621, end: 20170621
  22. POLYENE PHOSPHATIDYLCHOLINE [Concomitant]
     Active Substance: PHOSPHOLIPID
     Dates: start: 20200417, end: 20200427
  23. RECOMBINANT HUMAN INSULIN [Concomitant]
     Active Substance: INSULIN HUMAN
     Dosage: NUTRITIONAL MYOCARDIUM
     Dates: start: 20170621, end: 20170621
  24. TRIMETAZIDINE DIHYDROCHLORIDE [Concomitant]
     Active Substance: TRIMETAZIDINE DIHYDROCHLORIDE
     Dosage: HEART PROTECTION
     Dates: start: 20170626, end: 20170703
  25. METFORMIN HYDROCHLORIDE. [Concomitant]
     Active Substance: METFORMIN HYDROCHLORIDE
     Dates: start: 20180414
  26. SITAGLIPTIN PHOSPHATE [Concomitant]
     Active Substance: SITAGLIPTIN PHOSPHATE
     Indication: HYPERGLYCAEMIA
     Dates: start: 20210310
  27. FRUCTOSE DIPHOSPHATE SODIUM [Concomitant]
     Dosage: HEART PROTECTION
     Dates: start: 20170626, end: 20170703
  28. SPIRONOLACTONE. [Concomitant]
     Active Substance: SPIRONOLACTONE
     Indication: PERICARDIAL EFFUSION
     Dates: start: 20170810, end: 20170903
  29. SPIRONOLACTONE. [Concomitant]
     Active Substance: SPIRONOLACTONE
     Indication: POLYURIA
     Dates: start: 20170718, end: 20170723
  30. FUROSEMIDE. [Concomitant]
     Active Substance: FUROSEMIDE
     Indication: PERICARDIAL EFFUSION
     Dates: start: 20170810, end: 20170903
  31. ACETYLCYSTEINE. [Concomitant]
     Active Substance: ACETYLCYSTEINE
     Indication: COUGH
     Route: 048
     Dates: start: 20170120, end: 20170126
  32. ACETYLCYSTEINE. [Concomitant]
     Active Substance: ACETYLCYSTEINE
     Indication: PRODUCTIVE COUGH
  33. CELECOXIB. [Concomitant]
     Active Substance: CELECOXIB
     Indication: LIGAMENT SPRAIN
     Dates: start: 20190726, end: 20190804
  34. COMPOUND GLYCYRRHIZAE (UNK INGREDIENTS) [Concomitant]
     Indication: COUGH
     Route: 048
     Dates: start: 20180131, end: 20180206
  35. ADEMETIONINE 1,4?BUTANEDISULFONATE [Concomitant]
     Active Substance: ADEMETIONINE BUTANEDISULFONATE
     Dates: start: 20200417, end: 20200427
  36. ROSIGLITAZONE SODIUM [Concomitant]
     Active Substance: ROSIGLITAZONE
     Indication: HYPERGLYCAEMIA
     Dates: start: 20200124, end: 20200222

REACTIONS (2)
  - Blood creatine phosphokinase increased [Recovered/Resolved]
  - Hypothyroidism [Not Recovered/Not Resolved]

NARRATIVE: CASE EVENT DATE: 20170119
